FAERS Safety Report 7413682-7 (Version None)
Quarter: 2011Q2

REPORT INFORMATION
  Report Type: 
  Country: None (occurrence: None)
  Receive Date: 20110413
  Receipt Date: 20110324
  Transmission Date: 20111010
  Serious: Yes (Hospitalization, Other)
  Sender: FDA-Public Use
  Company Number: US-BAYER-2010-003864

PATIENT
  Age: 42 Year
  Sex: Female
  Weight: 81.633 kg

DRUGS (14)
  1. MOTRIN [Concomitant]
     Indication: PAIN
  2. NAPROXEN [Concomitant]
     Dosage: 500 MG, BID
     Route: 048
     Dates: start: 20050901
  3. PROZAC [Concomitant]
  4. FOLIC ACID [Concomitant]
  5. VICODIN [Concomitant]
  6. YASMIN [Suspect]
     Indication: PREMENSTRUAL SYNDROME
     Dosage: UNK
     Route: 048
     Dates: start: 20031201, end: 20050901
  7. CLINCLESSE [Concomitant]
  8. IBUPROFEN [Concomitant]
  9. SOMA [Concomitant]
  10. FERSOL [Concomitant]
  11. OMNICEF [Concomitant]
     Dosage: 300 MG, UNK
  12. DARVOCET [Concomitant]
  13. HYDROCODONE [Concomitant]
     Indication: PAIN
  14. TORADOL [Concomitant]

REACTIONS (4)
  - THROMBOPHLEBITIS SUPERFICIAL [None]
  - PAIN [None]
  - DEEP VEIN THROMBOSIS [None]
  - THROMBOSIS [None]
